FAERS Safety Report 8840196 (Version 5)
Quarter: 2012Q4

REPORT INFORMATION
  Report Type: 
  Country: US (occurrence: US)
  Receive Date: 20121015
  Receipt Date: 20121218
  Transmission Date: 20130627
  Serious: Yes (Hospitalization, Other)
  Sender: FDA-Public Use
  Company Number: US-GILEAD-2012-0062925

PATIENT
  Sex: Female

DRUGS (7)
  1. LETAIRIS [Suspect]
     Indication: PULMONARY HYPERTENSION
     Dosage: 10 mg, QD
     Route: 048
     Dates: start: 20120630
  2. LETAIRIS [Suspect]
     Indication: COR PULMONALE CHRONIC
  3. LETAIRIS [Suspect]
     Indication: DIASTOLIC DYSFUNCTION
  4. LETAIRIS [Suspect]
     Indication: SYSTEMIC SCLEROSIS
  5. LETAIRIS [Suspect]
     Indication: INTERSTITIAL LUNG DISEASE
  6. TYVASO [Concomitant]
  7. REVATIO [Concomitant]

REACTIONS (5)
  - Syncope [Unknown]
  - Chest pain [Unknown]
  - Pulmonary arterial hypertension [Unknown]
  - Dyspnoea [Unknown]
  - Fluid retention [Unknown]
